FAERS Safety Report 14458588 (Version 1)
Quarter: 2018Q1

REPORT INFORMATION
  Report Type: Spontaneous
  Country: GR (occurrence: GR)
  Receive Date: 20180130
  Receipt Date: 20180130
  Transmission Date: 20180509
  Serious: Yes (Hospitalization)
  Sender: FDA-Public Use
  Company Number: GR-HORIZON-ACT-0030-2018

PATIENT
  Age: 60 Year
  Sex: Male

DRUGS (2)
  1. IMUKIN [Suspect]
     Active Substance: INTERFERON GAMMA
     Indication: PRODUCT USED FOR UNKNOWN INDICATION
  2. SANDOSTATIN [Concomitant]
     Active Substance: OCTREOTIDE ACETATE

REACTIONS (2)
  - Cholestasis [Recovered/Resolved]
  - Drug ineffective [Recovered/Resolved]
